FAERS Safety Report 8888173 (Version 2)
Quarter: 2012Q4

REPORT INFORMATION
  Report Type: 
  Country: US (occurrence: US)
  Receive Date: 20121106
  Receipt Date: 20121217
  Transmission Date: 20130627
  Serious: No
  Sender: FDA-Public Use
  Company Number: US-VERTEX PHARMACEUTICAL INC.-2012-024046

PATIENT
  Age: 47 Year
  Sex: Male
  Weight: 110 kg

DRUGS (8)
  1. INCIVEK [Suspect]
     Indication: HEPATITIS C
     Dosage: 750 mg, tid
     Route: 048
     Dates: start: 20121026
  2. COPEGUS [Suspect]
     Indication: HEPATITIS C
     Dosage: 600 mg, bid
     Dates: start: 20121026
  3. PEGASYS [Suspect]
     Indication: HEPATITIS C
     Dosage: 180 ?g, qw
     Route: 058
     Dates: start: 20121026
  4. SYNTHROID [Concomitant]
  5. NEURONTIN [Concomitant]
  6. NEXIUM                             /01479302/ [Concomitant]
  7. FAMOTIDINE [Concomitant]
  8. MIRALAX                            /00754501/ [Concomitant]

REACTIONS (4)
  - Anger [Unknown]
  - Stress [Unknown]
  - Rash papular [Recovered/Resolved]
  - Burning sensation [Unknown]
